FAERS Safety Report 21554749 (Version 9)
Quarter: 2023Q1

REPORT INFORMATION
  Report Type: Spontaneous
  Country: US (occurrence: US)
  Receive Date: 20221104
  Receipt Date: 20230309
  Transmission Date: 20230418
  Serious: Yes (Other)
  Sender: FDA-Public Use
  Company Number: US-PFIZER INC-PV202200088535

PATIENT
  Age: 74 Year
  Sex: Female

DRUGS (2)
  1. XELJANZ XR [Suspect]
     Active Substance: TOFACITINIB CITRATE
     Indication: Polyarthritis
     Dosage: 11 MG, 1X/DAY (BEFORE A MEAL)
  2. XELJANZ XR [Suspect]
     Active Substance: TOFACITINIB CITRATE
     Indication: Arthralgia

REACTIONS (19)
  - Non-Hodgkin^s lymphoma [Recovering/Resolving]
  - Intraductal proliferative breast lesion [Recovering/Resolving]
  - Off label use [Unknown]
  - Dysstasia [Unknown]
  - Weight increased [Unknown]
  - Balance disorder [Unknown]
  - Hypoaesthesia [Unknown]
  - Condition aggravated [Unknown]
  - Upper-airway cough syndrome [Unknown]
  - Fatigue [Unknown]
  - Dry eye [Unknown]
  - Neck pain [Recovering/Resolving]
  - Rash [Unknown]
  - Pain [Recovering/Resolving]
  - Eye pain [Recovering/Resolving]
  - Skin burning sensation [Unknown]
  - Back pain [Recovering/Resolving]
  - Joint stiffness [Unknown]
  - Pain in extremity [Recovering/Resolving]
